FAERS Safety Report 14434988 (Version 2)
Quarter: 2018Q2

REPORT INFORMATION
  Report Type: Other
  Country: FR (occurrence: FR)
  Receive Date: 20180125
  Receipt Date: 20180410
  Transmission Date: 20180711
  Serious: Yes (Hospitalization, Other)
  Sender: FDA-Public Use
  Company Number: FR-MACLEODS PHARMACEUTICALS US LTD-MAC2018008687

PATIENT

DRUGS (12)
  1. OLANZAPINE. [Suspect]
     Active Substance: OLANZAPINE
     Indication: PRODUCT USED FOR UNKNOWN INDICATION
     Dosage: 10 MG, QD
     Route: 048
     Dates: start: 20150711, end: 20150811
  2. ABILIFY [Suspect]
     Active Substance: ARIPIPRAZOLE
     Dosage: UNK
     Route: 065
  3. VALIUM [Suspect]
     Active Substance: DIAZEPAM
     Indication: PRODUCT USED FOR UNKNOWN INDICATION
     Dosage: 5 MG, QD
     Route: 048
     Dates: start: 20150711, end: 20150815
  4. ZOLPIDEM [Concomitant]
     Active Substance: ZOLPIDEM\ZOLPIDEM TARTRATE
     Dosage: 1 DF, UNK
     Route: 048
     Dates: start: 20150711, end: 20150815
  5. ABILIFY [Suspect]
     Active Substance: ARIPIPRAZOLE
     Dosage: 20 MG, BID
     Route: 048
     Dates: start: 20150811, end: 20150813
  6. ABILIFY MAINTENA [Suspect]
     Active Substance: ARIPIPRAZOLE
     Indication: PRODUCT USED FOR UNKNOWN INDICATION
     Dosage: 400 MG, QM SUSPENSION FOR INJECTION
     Route: 030
     Dates: start: 20150730
  7. ABILIFY [Suspect]
     Active Substance: ARIPIPRAZOLE
     Dosage: 20 MG, BID
     Route: 048
     Dates: start: 20150711, end: 20150813
  8. LOXAPAC [Suspect]
     Active Substance: LOXAPINE
     Indication: PRODUCT USED FOR UNKNOWN INDICATION
     Dosage: 300 MG, QD  1 DF= 2 INJ/ DAY AND 300 MG/DAY ORALLY
     Route: 048
     Dates: start: 20150711, end: 20150815
  9. ZOLPIDEM [Concomitant]
     Active Substance: ZOLPIDEM\ZOLPIDEM TARTRATE
     Indication: PRODUCT USED FOR UNKNOWN INDICATION
     Dosage: UNK
     Route: 048
     Dates: start: 20150825
  10. ABILIFY [Suspect]
     Active Substance: ARIPIPRAZOLE
     Indication: PRODUCT USED FOR UNKNOWN INDICATION
     Dosage: 15 MG, BID
     Route: 048
     Dates: start: 20150711
  11. ZOPICLONE [Suspect]
     Active Substance: ZOPICLONE
     Indication: PRODUCT USED FOR UNKNOWN INDICATION
     Dosage: 1 DF/DAY IN NEED
     Route: 065
     Dates: start: 20150711, end: 20150815
  12. LOXAPAC [Suspect]
     Active Substance: LOXAPINE
     Dosage: UNK 50, 2 INJECTIONS PER DAY
     Route: 051
     Dates: start: 20150711, end: 20150815

REACTIONS (10)
  - Erythema [Unknown]
  - Product use issue [Unknown]
  - Septic shock [Unknown]
  - Pyelonephritis [Unknown]
  - Off label use [Unknown]
  - Pancytopenia [Recovered/Resolved]
  - Skin injury [Unknown]
  - Erysipelas [Unknown]
  - Blister [Unknown]
  - Adverse event [Unknown]

NARRATIVE: CASE EVENT DATE: 201508
